FAERS Safety Report 5521668-2 (Version None)
Quarter: 2007Q4

REPORT INFORMATION
  Report Type: 
  Country: None (occurrence: None)
  Receive Date: 20071120
  Receipt Date: 20071115
  Transmission Date: 20080405
  Serious: Yes (Death, Hospitalization)
  Sender: FDA-Public Use
  Company Number: PHFR2007GB02192

PATIENT
  Age: 44 Year
  Sex: Male
  Weight: 60 kg

DRUGS (12)
  1. ZOMETA [Suspect]
     Indication: HYPERCALCAEMIA OF MALIGNANCY
     Dosage: 4 MG, QW3
     Route: 042
     Dates: start: 20050302, end: 20070808
  2. PAMIDRONATE DISODIUM [Suspect]
     Indication: HYPERCALCAEMIA OF MALIGNANCY
     Dosage: 120MG
     Route: 042
     Dates: start: 20070630
  3. CALCITONIN SALMON [Suspect]
     Indication: HYPERCALCAEMIA OF MALIGNANCY
     Dosage: 100 DF, QD
     Route: 058
     Dates: start: 20070709
  4. CALCITONIN SALMON [Suspect]
     Dosage: 200 DF, QD
     Route: 045
     Dates: end: 20070818
  5. IBANDRONATE SODIUM [Suspect]
     Indication: HYPERCALCAEMIA OF MALIGNANCY
     Dosage: 50MG DAILY
     Route: 048
     Dates: start: 20070720, end: 20070818
  6. PANTOPRAZOLE SODIUM [Concomitant]
     Dosage: 40 MG, QD
     Route: 042
     Dates: start: 20070817
  7. GABAPENTIN [Concomitant]
     Indication: NEURALGIA
     Dosage: 900 MG, TID
     Route: 048
  8. OXYCONTIN [Concomitant]
     Indication: PAIN
     Dosage: 160 MG, BID
     Route: 048
  9. DEXAMETHASONE [Concomitant]
     Indication: BRAIN OEDEMA
     Dosage: 8 MG, BID
     Route: 048
  10. CLARITHROMYCIN [Concomitant]
     Indication: LOWER RESPIRATORY TRACT INFECTION
     Dosage: 500 MG, BID
     Route: 042
     Dates: start: 20070814, end: 20070817
  11. TAZOCIN [Concomitant]
     Indication: SEPSIS
     Dosage: 4.5 G, TID
     Route: 042
     Dates: start: 20070814, end: 20070818
  12. NYSTATIN [Concomitant]
     Dosage: 100000 DF, QID
     Route: 048

REACTIONS (5)
  - ANTIBODY TEST POSITIVE [None]
  - BLOOD CALCIUM INCREASED [None]
  - HYPERCALCAEMIA [None]
  - METASTATIC RENAL CELL CARCINOMA [None]
  - SEPSIS [None]
